FAERS Safety Report 15818949 (Version 3)
Quarter: 2019Q2

REPORT INFORMATION
  Report Type: Report from Study
  Country: None (occurrence: US)
  Receive Date: 20190114
  Receipt Date: 20190508
  Transmission Date: 20190711
  Serious: Yes (Other)
  Sender: FDA-Public Use
  Company Number: US-ABBVIE-18K-163-2551945-00

PATIENT
  Age: 61 Year
  Sex: Female

DRUGS (3)
  1. HUMIRA [Suspect]
     Active Substance: ADALIMUMAB
     Indication: RHEUMATOID ARTHRITIS
     Route: 058
     Dates: start: 20181030, end: 2018
  2. HUMIRA [Suspect]
     Active Substance: ADALIMUMAB
     Route: 058
     Dates: start: 2019
  3. HUMIRA [Suspect]
     Active Substance: ADALIMUMAB
     Route: 058
     Dates: start: 20181204, end: 20181225

REACTIONS (11)
  - Biopsy breast [Recovered/Resolved]
  - Loss of personal independence in daily activities [Unknown]
  - Vision blurred [Unknown]
  - Biopsy breast [Unknown]
  - Fatigue [Not Recovered/Not Resolved]
  - Procedural pain [Unknown]
  - Musculoskeletal stiffness [Recovering/Resolving]
  - Hypertension [Unknown]
  - Anxiety [Unknown]
  - Hypertension [Recovered/Resolved]
  - Oropharyngeal pain [Recovered/Resolved]

NARRATIVE: CASE EVENT DATE: 2018
